FAERS Safety Report 17362178 (Version 1)
Quarter: 2020Q1

REPORT INFORMATION
  Report Type: Spontaneous
  Country: DE (occurrence: DE)
  Receive Date: 20200203
  Receipt Date: 20200203
  Transmission Date: 20200409
  Serious: Yes (Hospitalization, Other)
  Sender: FDA-Public Use
  Company Number: DE-PFIZER INC-2020040281

PATIENT
  Sex: Female

DRUGS (1)
  1. XELJANZ [Suspect]
     Active Substance: TOFACITINIB CITRATE
     Indication: PSORIATIC ARTHROPATHY
     Dosage: 5 MG, 2X/DAY
     Dates: start: 201906

REACTIONS (23)
  - Vomiting [Unknown]
  - Pancreas infection [Unknown]
  - Headache [Unknown]
  - Pyrexia [Unknown]
  - Diarrhoea haemorrhagic [Unknown]
  - Sleep disorder [Unknown]
  - Somnolence [Unknown]
  - Pyrexia [Unknown]
  - Gallbladder disorder [Unknown]
  - Tenderness [Unknown]
  - Cholelithiasis [Unknown]
  - Pain [Unknown]
  - Gastritis [Unknown]
  - Abdominal pain upper [Unknown]
  - Abdominal discomfort [Unknown]
  - Skin odour abnormal [Unknown]
  - Colitis [Unknown]
  - Chills [Unknown]
  - Hyperhidrosis [Unknown]
  - Vomiting [Unknown]
  - Nausea [Unknown]
  - Visual impairment [Unknown]
  - Dizziness [Unknown]

NARRATIVE: CASE EVENT DATE: 201910
